FAERS Safety Report 4314868-0 (Version None)
Quarter: 2004Q1

REPORT INFORMATION
  Report Type: 
  Country: None (occurrence: None)
  Receive Date: 20040310
  Receipt Date: 20040310
  Transmission Date: 20041129
  Serious: Yes (Other)
  Sender: FDA-Public Use
  Company Number: None

PATIENT
  Age: 51 Year
  Sex: Male
  Weight: 62.1428 kg

DRUGS (2)
  1. PHENYTOIN [Suspect]
     Indication: CONVULSION
  2. PHENYTOIN [Suspect]
     Indication: INJURY

REACTIONS (7)
  - ASPARTATE AMINOTRANSFERASE INCREASED [None]
  - ASTHENIA [None]
  - COORDINATION ABNORMAL [None]
  - DRUG LEVEL ABOVE THERAPEUTIC [None]
  - LETHARGY [None]
  - MEDICATION ERROR [None]
  - NYSTAGMUS [None]
